FAERS Safety Report 4366926-2 (Version None)
Quarter: 2004Q2

REPORT INFORMATION
  Report Type: 
  Country: None (occurrence: None)
  Receive Date: 20040528
  Receipt Date: 20040510
  Transmission Date: 20050107
  Serious: Yes (Hospitalization)
  Sender: FDA-Public Use
  Company Number: DE-BRISTOL-MYERS SQUIBB COMPANY-12598488

PATIENT
  Age: 80 Year
  Sex: Female

DRUGS (7)
  1. METFORMIN HCL [Suspect]
     Indication: DIABETES MELLITUS
     Route: 048
  2. CONCOR [Suspect]
     Indication: HYPERTENSION
     Route: 048
  3. MANINIL [Suspect]
     Indication: DIABETES MELLITUS
     Route: 048
  4. ENALAPRIL MALEATE [Suspect]
     Indication: HYPERTENSION
     Route: 048
  5. ASPIRIN [Concomitant]
     Indication: PLATELET AGGREGATION INHIBITION
     Route: 048
  6. DIGITOXIN TAB [Concomitant]
     Indication: CARDIAC FAILURE
     Route: 048
  7. L-THYROXINE [Concomitant]
     Indication: HYPOTHYROIDISM
     Route: 048
     Dates: start: 19940101

REACTIONS (1)
  - SHOCK HYPOGLYCAEMIC [None]
